FAERS Safety Report 5872424-7 (Version None)
Quarter: 2008Q3

REPORT INFORMATION
  Report Type: 
  Country: None (occurrence: None)
  Receive Date: 20080905
  Receipt Date: 20080828
  Transmission Date: 20090109
  Serious: Yes (Hospitalization)
  Sender: FDA-Public Use
  Company Number: CHNY2008PE01051

PATIENT
  Age: 42 Year
  Sex: Female
  Weight: 72 kg

DRUGS (2)
  1. DICLOFENAC SODIUM PATCH [Suspect]
     Indication: BACK PAIN
     Dosage: 1 PATCH
     Route: 062
     Dates: start: 20080227, end: 20080227
  2. ACETAMINOPHEN [Concomitant]
     Indication: BACK PAIN
     Dosage: 1 DF, TID
     Dates: start: 20080227

REACTIONS (6)
  - BLOOD CHOLESTEROL INCREASED [None]
  - BLOOD GLUCOSE INCREASED [None]
  - BLOOD TRIGLYCERIDES INCREASED [None]
  - CAESAREAN SECTION [None]
  - DRUG EXPOSURE DURING PREGNANCY [None]
  - VERY LOW DENSITY LIPOPROTEIN INCREASED [None]
